FAERS Safety Report 8254716-X (Version None)
Quarter: 2012Q1

REPORT INFORMATION
  Report Type: 
  Country: None (occurrence: None)
  Receive Date: 20120329
  Receipt Date: 20120317
  Transmission Date: 20120608
  Serious: Yes (Hospitalization, Other)
  Sender: FDA-Public Use
  Company Number: 2012AP000749

PATIENT
  Age: 4 Year
  Sex: Male

DRUGS (2)
  1. FLUMAZENIL [Suspect]
     Indication: PRODUCT USED FOR UNKNOWN INDICATION
  2. CLONAZEPAM [Suspect]
     Indication: PRODUCT USED FOR UNKNOWN INDICATION

REACTIONS (11)
  - DRUG LEVEL INCREASED [None]
  - RESPIRATORY DEPRESSION [None]
  - DEPRESSED LEVEL OF CONSCIOUSNESS [None]
  - ATRIOVENTRICULAR BLOCK FIRST DEGREE [None]
  - MIOSIS [None]
  - ACCIDENTAL OVERDOSE [None]
  - HYPOPNOEA [None]
  - ATRIOVENTRICULAR BLOCK SECOND DEGREE [None]
  - ACCIDENTAL DRUG INTAKE BY CHILD [None]
  - UNRESPONSIVE TO STIMULI [None]
  - ATAXIA [None]
